FAERS Safety Report 22305434 (Version 2)
Quarter: 2023Q2

REPORT INFORMATION
  Report Type: Spontaneous
  Country: US (occurrence: US)
  Receive Date: 20230510
  Receipt Date: 20230512
  Transmission Date: 20230721
  Serious: Yes (Other)
  Sender: FDA-Public Use
  Company Number: US-PURDUE-USA-2023-0301988

PATIENT
  Sex: Female

DRUGS (3)
  1. COLACE [Suspect]
     Active Substance: DOCUSATE SODIUM
     Indication: Constipation
     Dosage: 2 CAPSL, DAILY
     Route: 048
     Dates: end: 20230507
  2. COLACE [Suspect]
     Active Substance: DOCUSATE SODIUM
     Dosage: 4 CAPSL
     Route: 048
  3. COLACE [Suspect]
     Active Substance: DOCUSATE SODIUM
     Dosage: 20 MILLIGRAM, AM (TWO EVERY MORNING)
     Route: 048

REACTIONS (1)
  - Haematochezia [Recovered/Resolved]
